FAERS Safety Report 12191660 (Version 1)
Quarter: 2016Q1

REPORT INFORMATION
  Report Type: Spontaneous
  Country: US (occurrence: US)
  Receive Date: 20160318
  Receipt Date: 20160318
  Transmission Date: 20160526
  Serious: Yes (Death)
  Sender: FDA-Public Use
  Company Number: US-TAIHO ONCOLOGY INC-EU-2016-00474

PATIENT
  Age: 67 Year
  Sex: Male
  Weight: 73.55 kg

DRUGS (1)
  1. LONSURF [Suspect]
     Active Substance: TIPIRACIL HYDROCHLORIDE\TRIFLURIDINE
     Indication: COLON CANCER
     Dosage: CURRENT CYCLE 2, STARTED START DATE UNKNOWN
     Route: 048
     Dates: start: 20160116, end: 20160306

REACTIONS (1)
  - Death [Fatal]

NARRATIVE: CASE EVENT DATE: 20160306
